FAERS Safety Report 18282281 (Version 1)
Quarter: 2020Q3

REPORT INFORMATION
  Report Type: Spontaneous
  Country: US (occurrence: US)
  Receive Date: 20200918
  Receipt Date: 20200918
  Transmission Date: 20201103
  Serious: Yes (Life-Threatening, Hospitalization, Disabling, Other)
  Sender: FDA-Public Use
  Company Number: US-BAYER-2020-189623

PATIENT
  Age: 52 Year
  Sex: Female

DRUGS (1)
  1. GADAVIST [Suspect]
     Active Substance: GADOBUTROL
     Indication: MAGNETIC RESONANCE IMAGING
     Dosage: UNK
     Route: 042
     Dates: start: 2012

REACTIONS (19)
  - Cerebrovascular accident [None]
  - Thrombosis [Not Recovered/Not Resolved]
  - Movement disorder [Not Recovered/Not Resolved]
  - Pain [Not Recovered/Not Resolved]
  - Feeding disorder [Not Recovered/Not Resolved]
  - Nausea [Not Recovered/Not Resolved]
  - Malaise [Not Recovered/Not Resolved]
  - Renal failure [Not Recovered/Not Resolved]
  - Insomnia [Not Recovered/Not Resolved]
  - Central nervous system injury [Not Recovered/Not Resolved]
  - Gait disturbance [Not Recovered/Not Resolved]
  - Dysphagia [Not Recovered/Not Resolved]
  - Swelling [Not Recovered/Not Resolved]
  - Visual impairment [Not Recovered/Not Resolved]
  - Agraphia [Not Recovered/Not Resolved]
  - Gait inability [Not Recovered/Not Resolved]
  - Motor dysfunction [None]
  - Memory impairment [Not Recovered/Not Resolved]
  - Wrist fracture [Not Recovered/Not Resolved]

NARRATIVE: CASE EVENT DATE: 20200906
